FAERS Safety Report 11792527 (Version 3)
Quarter: 2016Q4

REPORT INFORMATION
  Report Type: Report from Study
  Country: US (occurrence: US)
  Receive Date: 20151202
  Receipt Date: 20161219
  Transmission Date: 20170206
  Serious: Yes (Hospitalization, Other)
  Sender: FDA-Public Use
  Company Number: US-GILEAD-2015-0185002

PATIENT
  Age: 77 Year
  Sex: Male

DRUGS (3)
  1. AMBRISENTAN [Suspect]
     Active Substance: AMBRISENTAN
     Indication: PULMONARY HYPERTENSION
     Dosage: 10 MG, UNK
     Route: 065
     Dates: start: 20120907
  2. XARELTO [Concomitant]
     Active Substance: RIVAROXABAN
  3. AMBRISENTAN [Suspect]
     Active Substance: AMBRISENTAN
     Indication: CARDIAC DISORDER

REACTIONS (8)
  - Left ventricular failure [Unknown]
  - Urinary tract infection [Unknown]
  - Chest pain [Not Recovered/Not Resolved]
  - Drug ineffective [Unknown]
  - Dyspnoea exertional [Not Recovered/Not Resolved]
  - Pneumonia [Unknown]
  - Palpitations [Not Recovered/Not Resolved]
  - Hypertension [Unknown]
